FAERS Safety Report 7812636-6 (Version None)
Quarter: 2011Q4

REPORT INFORMATION
  Report Type: 
  Country: None (occurrence: None)
  Receive Date: 20111013
  Receipt Date: 20110930
  Transmission Date: 20120403
  Serious: Yes (Hospitalization)
  Sender: FDA-Public Use
  Company Number: US-BAYER-2011-013295

PATIENT
  Age: 31 Year
  Sex: Female
  Weight: 135.15 kg

DRUGS (3)
  1. YASMIN [Suspect]
     Indication: POLYCYSTIC OVARIES
     Dosage: UNK
     Route: 048
     Dates: start: 20041201, end: 20090101
  2. NYSTATIN [Concomitant]
     Indication: RASH
     Dosage: UNK UNK, PRN
     Route: 061
     Dates: start: 20080121
  3. HYDROCHLOROTHIAZIDE [Concomitant]
     Indication: OEDEMA
     Dosage: UNK UNK, PRN
     Route: 048
     Dates: start: 20071120

REACTIONS (5)
  - PAIN [None]
  - ABDOMINAL PAIN [None]
  - NAUSEA [None]
  - INJURY [None]
  - CHOLECYSTITIS [None]
